FAERS Safety Report 23258348 (Version 1)
Quarter: 2023Q4

REPORT INFORMATION
  Report Type: Spontaneous
  Country: US (occurrence: US)
  Receive Date: 20231204
  Receipt Date: 20231204
  Transmission Date: 20240110
  Serious: Yes (Hospitalization, Other)
  Sender: FDA-Public Use
  Company Number: US-MLMSERVICE-20231116-4664140-1

PATIENT

DRUGS (1)
  1. ESTRADIOL [Suspect]
     Active Substance: ESTRADIOL
     Indication: Transgender hormonal therapy
     Dosage: 2 MILLIGRAM, BID (12 HOURS)
     Route: 060

REACTIONS (3)
  - Acute coronary syndrome [Recovering/Resolving]
  - Coronary artery dissection [Recovering/Resolving]
  - Ventricular hypokinesia [Recovering/Resolving]
